FAERS Safety Report 9089805 (Version 1)
Quarter: 2013Q1

REPORT INFORMATION
  Report Type: Spontaneous
  Country: US (occurrence: US)
  Receive Date: 20130201
  Receipt Date: 20130201
  Transmission Date: 20140127
  Serious: No
  Sender: FDA-Public Use
  Company Number: US-GALDERMA-US-GDP-12413715

PATIENT
  Age: 60 Year
  Sex: Female
  Weight: 66 kg

DRUGS (4)
  1. EPIDUO [Suspect]
     Indication: ACNE
     Route: 061
     Dates: start: 20120426, end: 20120507
  2. DIOVAN [Concomitant]
     Indication: HYPERTENSION
     Route: 048
  3. PRILOSEC [Concomitant]
     Indication: DYSPEPSIA
     Route: 048
  4. ACZONE [Concomitant]
     Indication: PHOTOSENSITIVITY REACTION
     Route: 061

REACTIONS (6)
  - Rash macular [Recovered/Resolved]
  - Blister [Recovered/Resolved]
  - Skin haemorrhage [Recovered/Resolved]
  - Pruritus [Recovered/Resolved]
  - Skin burning sensation [Recovered/Resolved]
  - Erythema [Recovered/Resolved]
